FAERS Safety Report 6152003-7 (Version None)
Quarter: 2009Q2

REPORT INFORMATION
  Report Type: 
  Country: None (occurrence: None)
  Receive Date: 20090409
  Receipt Date: 20090409
  Transmission Date: 20091009
  Serious: Yes (Life-Threatening)
  Sender: FDA-Public Use
  Company Number: None

PATIENT
  Age: 49 Year
  Sex: Female
  Weight: 65.7716 kg

DRUGS (2)
  1. EFFEXOR [Suspect]
     Indication: MIGRAINE
     Dosage: 35 MG. TWICE A DAY
     Dates: start: 19980401, end: 19990801
  2. IMITREX [Suspect]
     Indication: MIGRAINE
     Dates: start: 19950301, end: 20071201

REACTIONS (6)
  - DRUG INEFFECTIVE [None]
  - DRUG WITHDRAWAL SYNDROME [None]
  - INSOMNIA [None]
  - MENOPAUSE [None]
  - MIGRAINE [None]
  - WEIGHT INCREASED [None]
